FAERS Safety Report 5569910-6 (Version None)
Quarter: 2007Q4

REPORT INFORMATION
  Report Type: 
  Country: None (occurrence: None)
  Receive Date: 20071218
  Receipt Date: 20071210
  Transmission Date: 20080405
  Serious: Yes (Hospitalization)
  Sender: FDA-Public Use
  Company Number: 920#8#2007-00007

PATIENT
  Age: 72 Year
  Sex: Male

DRUGS (5)
  1. NIFEDIPINE-DOSE-UNKNOWN-EXTENTED-RELEASE -TABLET (NIFEDIPINE) [Suspect]
     Indication: PRINZMETAL ANGINA
     Dosage: 40 MG
  2. DILTIAZEM [Suspect]
     Indication: PRINZMETAL ANGINA
     Dosage: 400MG
  3. NICORANDIL [Suspect]
     Indication: PRINZMETAL ANGINA
     Dosage: 15 MG
  4. DOXAZOSIN [Suspect]
     Indication: PRINZMETAL ANGINA
     Dosage: 4 MG
  5. NITROGLYCERIN [Suspect]
     Indication: PRINZMETAL ANGINA

REACTIONS (4)
  - ARTERIOSPASM CORONARY [None]
  - CORONARY ARTERY OCCLUSION [None]
  - NO THERAPEUTIC RESPONSE [None]
  - SKIN REACTION [None]
